FAERS Safety Report 23501542 (Version 1)
Quarter: 2024Q1

REPORT INFORMATION
  Report Type: Other
  Country: PT (occurrence: PT)
  Receive Date: 20240208
  Receipt Date: 20240208
  Transmission Date: 20240409
  Serious: Yes (Hospitalization)
  Sender: FDA-Public Use
  Company Number: PT-ALVOGEN-2024092964

PATIENT
  Age: 73 Year
  Sex: Male

DRUGS (11)
  1. DOXORUBICIN [Suspect]
     Active Substance: DOXORUBICIN
     Indication: Diffuse large B-cell lymphoma stage IV
     Dosage: ONE TO FOUR CYCLE
     Dates: start: 202101
  2. DOXORUBICIN [Suspect]
     Active Substance: DOXORUBICIN
     Indication: Diffuse large B-cell lymphoma stage IV
     Dosage: FIFTH AND SIXTH CYCLE WAS RESUMED AFTER FIRST NEGATIVE PCR TEST
  3. RITUXIMAB [Suspect]
     Active Substance: RITUXIMAB
     Indication: Diffuse large B-cell lymphoma stage IV
     Dosage: ONE TO FOUR CYCLE
     Dates: start: 202101
  4. RITUXIMAB [Suspect]
     Active Substance: RITUXIMAB
     Indication: Diffuse large B-cell lymphoma stage IV
     Dosage: FIFTH AND SIXTH CYCLE WAS RESUMED AFTER FIRST NEGATIVE PCR TEST
  5. CYCLOPHOSPHAMIDE [Suspect]
     Active Substance: CYCLOPHOSPHAMIDE
     Indication: Diffuse large B-cell lymphoma stage IV
     Dosage: ONE TO FOUR CYCLE
     Dates: start: 202101
  6. CYCLOPHOSPHAMIDE [Suspect]
     Active Substance: CYCLOPHOSPHAMIDE
     Indication: Diffuse large B-cell lymphoma stage IV
     Dosage: FIFTH AND SIXTH CYCLE WAS RESUMED AFTER FIRST NEGATIVE PCR TEST
  7. VINCRISTINE [Suspect]
     Active Substance: VINCRISTINE
     Indication: Diffuse large B-cell lymphoma stage IV
     Dosage: ONE TO FOUR CYCLE
     Dates: start: 202101
  8. VINCRISTINE [Suspect]
     Active Substance: VINCRISTINE
     Indication: Diffuse large B-cell lymphoma stage IV
     Dosage: FIFTH AND SIXTH CYCLE WAS RESUMED AFTER FIRST NEGATIVE PCR TEST
  9. PREDNISONE [Suspect]
     Active Substance: PREDNISONE
     Indication: Diffuse large B-cell lymphoma stage IV
     Dosage: ONE TO FOUR CYCLE
     Dates: start: 202101
  10. PREDNISONE [Suspect]
     Active Substance: PREDNISONE
     Indication: Diffuse large B-cell lymphoma stage IV
     Dosage: FIFTH AND SIXTH CYCLE WAS RESUMED AFTER FIRST NEGATIVE PCR TEST
  11. COVID-19 mRNA [Concomitant]
     Indication: COVID-19 immunisation

REACTIONS (4)
  - Immunosuppression [Unknown]
  - Condition aggravated [Unknown]
  - COVID-19 [Recovered/Resolved]
  - Respiratory failure [Recovered/Resolved]
